FAERS Safety Report 9450635 (Version 1)
Quarter: 2013Q3

REPORT INFORMATION
  Report Type: Spontaneous
  Country: US (occurrence: US)
  Receive Date: 20130809
  Receipt Date: 20130809
  Transmission Date: 20140515
  Serious: No
  Sender: FDA-Public Use
  Company Number: US-B.I. PHARMACEUTICALS,INC./RIDGEFIELD-2013-BI-23689BP

PATIENT
  Age: 43 Year
  Sex: Female

DRUGS (21)
  1. COMBIVENT [Suspect]
     Indication: ASTHMA
     Dosage: STRENGTH: 20 MCG / 100 MCG; DAILY DOSE: 80 MCG / 400 MCG
     Route: 055
     Dates: start: 20130803
  2. ALLEGRA [Concomitant]
     Indication: SEASONAL ALLERGY
     Dosage: 180 MG
     Route: 048
  3. CYCLOBENZAPRINE [Concomitant]
     Indication: INSOMNIA
     Route: 048
  4. EFFEXOR [Concomitant]
     Indication: BIPOLAR DISORDER
     Dosage: 75 MG
     Route: 055
  5. WELLBUTRIN [Concomitant]
     Indication: BIPOLAR DISORDER
     Dosage: 150 MG
     Route: 048
  6. TRAZODONE [Concomitant]
     Indication: DEPRESSION
     Dosage: 200 MG
     Route: 048
  7. ZANAFLEX [Concomitant]
     Indication: INSOMNIA
     Dosage: 8 MG
     Route: 048
  8. CARAFATE [Concomitant]
     Indication: ABDOMINAL PAIN UPPER
     Route: 048
  9. STADOL NASAL SPRAY [Concomitant]
     Indication: MIGRAINE
     Dosage: (NASAL SPRAY)
     Route: 045
  10. TOPAMAX [Concomitant]
     Indication: MIGRAINE
     Dosage: 200 MG
     Route: 048
  11. CLARITIN D [Concomitant]
     Indication: SEASONAL ALLERGY
     Route: 048
  12. OMEPRAZOLE [Concomitant]
     Indication: GASTROOESOPHAGEAL REFLUX DISEASE
     Dosage: 20 MG
     Route: 048
  13. XANAX [Concomitant]
     Indication: ANXIETY
     Dosage: 1 MG
     Route: 048
  14. LASIX [Concomitant]
     Indication: OEDEMA PERIPHERAL
     Dosage: 40 MG
     Route: 048
  15. HYDROCODONE [Concomitant]
     Indication: MIGRAINE
     Dosage: 5 MG
     Route: 048
  16. PRENATAL VITAMINS [Concomitant]
     Route: 048
  17. NABUMETONE [Concomitant]
     Indication: FIBROMYALGIA
     Dosage: 1500 MG
     Route: 048
  18. BUSPAR [Concomitant]
     Indication: BIPOLAR DISORDER
     Dosage: 30 MG
     Route: 048
  19. SIMVASTATIN [Concomitant]
     Indication: BLOOD CHOLESTEROL INCREASED
     Dosage: 40 MG
     Route: 048
  20. PROPRANOLOL [Concomitant]
     Indication: HYPERTENSION
     Dosage: 40 MG
     Route: 048
  21. GABAPENTIN [Concomitant]
     Indication: BIPOLAR DISORDER
     Dosage: 400 MG
     Route: 048

REACTIONS (2)
  - Cough [Not Recovered/Not Resolved]
  - Off label use [Unknown]
